FAERS Safety Report 7114358-6 (Version None)
Quarter: 2010Q4

REPORT INFORMATION
  Report Type: 
  Country: None (occurrence: None)
  Receive Date: 20101119
  Receipt Date: 20101029
  Transmission Date: 20110411
  Serious: Yes (Hospitalization, Other)
  Sender: FDA-Public Use
  Company Number: PHHO2008VE10983

PATIENT
  Sex: Female
  Weight: 21.8 kg

DRUGS (2)
  1. ELIDEL [Suspect]
     Indication: DERMATITIS ATOPIC
     Dosage: APPLIED TWICE DAILY
     Route: 061
     Dates: start: 20080323, end: 20080326
  2. ELIDEL [Suspect]
     Dosage: NO TREATMENT
     Dates: start: 20080327

REACTIONS (2)
  - PYREXIA [None]
  - UPPER RESPIRATORY TRACT INFECTION [None]
